FAERS Safety Report 7626181-4 (Version None)
Quarter: 2011Q3

REPORT INFORMATION
  Report Type: 
  Country: None (occurrence: None)
  Receive Date: 20110721
  Receipt Date: 20110707
  Transmission Date: 20111222
  Serious: Yes (Disabling, Other)
  Sender: FDA-Public Use
  Company Number: PHFR2011GB04122

PATIENT
  Age: 59 Year
  Sex: Female

DRUGS (2)
  1. IMATINIB MESYLATE [Suspect]
     Indication: CHRONIC MYELOID LEUKAEMIA
     Dosage: 400 ML, UNK
  2. IMATINIB MESYLATE [Suspect]
     Dosage: 300 ML, UNK

REACTIONS (7)
  - LIVER DISORDER [None]
  - GAIT DISTURBANCE [None]
  - PIGMENTATION DISORDER [None]
  - DISTURBANCE IN ATTENTION [None]
  - MEMORY IMPAIRMENT [None]
  - DIZZINESS [None]
  - DEPRESSION [None]
